FAERS Safety Report 5918753-X (Version None)
Quarter: 2008Q4

REPORT INFORMATION
  Report Type: 
  Country: None (occurrence: None)
  Receive Date: 20081015
  Receipt Date: 20080722
  Transmission Date: 20090506
  Serious: No
  Sender: FDA-Public Use
  Company Number: US-ASTRAZENECA-2008UW15236

PATIENT
  Age: 69 Year
  Sex: Male
  Weight: 85.3 kg

DRUGS (13)
  1. SYMBICORT [Suspect]
     Indication: EMPHYSEMA
     Dosage: 160/4.5 UG TWO INHALATIONS TWICE DAILY
     Route: 055
  2. SYMBICORT [Suspect]
     Indication: BRONCHITIS CHRONIC
     Dosage: 160/4.5 UG TWO INHALATIONS TWICE DAILY
     Route: 055
  3. PROTONIX [Concomitant]
  4. MICARDIS [Concomitant]
  5. FOSAMAX [Concomitant]
  6. ALLEGRA [Concomitant]
  7. VYTORIN [Concomitant]
  8. THEO-24 [Concomitant]
  9. SPIRIVA [Concomitant]
  10. ARAVA [Concomitant]
  11. FLOMAX [Concomitant]
  12. AVODART [Concomitant]
  13. AVELOX [Concomitant]

REACTIONS (3)
  - BREATH SOUNDS ABNORMAL [None]
  - CONDITION AGGRAVATED [None]
  - COUGH [None]
